FAERS Safety Report 10006606 (Version 1)
Quarter: 2014Q1

REPORT INFORMATION
  Report Type: Spontaneous
  Country: BR (occurrence: BR)
  Receive Date: 20140313
  Receipt Date: 20140313
  Transmission Date: 20141002
  Serious: Yes (Other)
  Sender: FDA-Public Use
  Company Number: BR-JNJFOC-20140305571

PATIENT
  Age: 26 Year
  Sex: Male
  Weight: 47.5 kg

DRUGS (10)
  1. REMICADE [Suspect]
     Indication: COLITIS
     Route: 042
  2. REMICADE [Suspect]
     Indication: COLITIS
     Route: 042
     Dates: start: 20140116
  3. REMICADE [Suspect]
     Indication: CROHN^S DISEASE
     Route: 042
  4. REMICADE [Suspect]
     Indication: CROHN^S DISEASE
     Route: 042
     Dates: start: 20140116
  5. PREDNISONE [Suspect]
     Indication: STEROID THERAPY
     Dosage: 20 (UNSPECIFIED UNITS)
     Route: 065
  6. PREDNISONE [Suspect]
     Indication: STEROID THERAPY
     Dosage: 30 (UNSPECIFIED UNITS)
     Route: 065
  7. AZATHIOPRINE [Concomitant]
     Indication: IMMUNOSUPPRESSION
     Route: 065
  8. PANTOPRAZOLE [Concomitant]
     Indication: GASTRITIS
     Route: 065
  9. PANTOPRAZOLE [Concomitant]
     Indication: GASTROOESOPHAGEAL REFLUX DISEASE
     Route: 065
  10. OS-CAL D [Concomitant]
     Indication: BLOOD CALCIUM
     Route: 065

REACTIONS (2)
  - Herpes zoster [Not Recovered/Not Resolved]
  - Hypersensitivity [Not Recovered/Not Resolved]
